FAERS Safety Report 10654625 (Version 1)
Quarter: 2014Q4

REPORT INFORMATION
  Report Type: Spontaneous
  Country: US (occurrence: US)
  Receive Date: 20141216
  Receipt Date: 20141216
  Transmission Date: 20150529
  Serious: Yes (Hospitalization, Other)
  Sender: FDA-Public Use
  Company Number: US-PFIZER INC-2014340235

PATIENT
  Age: 61 Year
  Sex: Female
  Weight: 61 kg

DRUGS (1)
  1. SUTENT [Suspect]
     Active Substance: SUNITINIB MALATE
     Indication: RENAL CANCER
     Dosage: 50 MG, CYCLIC
     Route: 048
     Dates: start: 20140909

REACTIONS (5)
  - Diarrhoea [Unknown]
  - Pneumonia [Unknown]
  - Asthenia [Unknown]
  - Vomiting [Unknown]
  - Confusional state [Unknown]
